FAERS Safety Report 17956356 (Version 3)
Quarter: 2020Q4

REPORT INFORMATION
  Report Type: Report from Study
  Country: CO (occurrence: CO)
  Receive Date: 20200629
  Receipt Date: 20201102
  Transmission Date: 20210113
  Serious: Yes (Life-Threatening, Other)
  Sender: FDA-Public Use
  Company Number: CO-BRISTOL-MYERS SQUIBB COMPANY-BMS-2016-090392

PATIENT
  Age: 51 Year
  Sex: Female

DRUGS (3)
  1. METHOTREXATE. [Concomitant]
     Active Substance: METHOTREXATE
     Indication: PRODUCT USED FOR UNKNOWN INDICATION
     Route: 065
  2. ABATACEPT [Suspect]
     Active Substance: ABATACEPT
     Dosage: 125 MILLIGRAM, QWK
     Route: 058
     Dates: start: 20160601, end: 20200311
  3. ABATACEPT [Suspect]
     Active Substance: ABATACEPT
     Indication: RHEUMATOID ARTHRITIS
     Dosage: 125 MILLIGRAM, QWK
     Route: 058
     Dates: start: 2015, end: 20180319

REACTIONS (22)
  - Headache [Not Recovered/Not Resolved]
  - Inflammation [Recovering/Resolving]
  - Abdominal pain upper [Recovering/Resolving]
  - Nail injury [Recovering/Resolving]
  - Diarrhoea [Recovering/Resolving]
  - Fall [Unknown]
  - Pain in extremity [Recovering/Resolving]
  - Ingrowing nail [Recovering/Resolving]
  - Arthritis [Recovering/Resolving]
  - Drug ineffective [Unknown]
  - Pallor [Recovering/Resolving]
  - Erythema [Recovering/Resolving]
  - Dizziness [Not Recovered/Not Resolved]
  - Pain [Recovering/Resolving]
  - Purulent discharge [Recovering/Resolving]
  - Arthralgia [Unknown]
  - Foot deformity [Recovering/Resolving]
  - Abdominal pain [Recovering/Resolving]
  - Pyrexia [Recovering/Resolving]
  - Arthralgia [Recovering/Resolving]
  - Breast injury [Recovering/Resolving]
  - Limb injury [Recovering/Resolving]

NARRATIVE: CASE EVENT DATE: 20161024
